FAERS Safety Report 5892638-X (Version None)
Quarter: 2008Q3

REPORT INFORMATION
  Report Type: 
  Country: None (occurrence: None)
  Receive Date: 20080919
  Receipt Date: 20080919
  Transmission Date: 20090109
  Serious: Yes (Other)
  Sender: FDA-Public Use
  Company Number: None

PATIENT
  Age: 64 Year
  Sex: Male
  Weight: 63.5036 kg

DRUGS (1)
  1. LISINOPRIL [Suspect]
     Dosage: 10 MG TWICE A DAY 047
     Dates: start: 20080620, end: 20080621

REACTIONS (5)
  - DIZZINESS [None]
  - FATIGUE [None]
  - INSOMNIA [None]
  - OVERDOSE [None]
  - PHARMACEUTICAL PRODUCT COMPLAINT [None]
